FAERS Safety Report 9476420 (Version 1)
Quarter: 2013Q3

REPORT INFORMATION
  Report Type: Spontaneous
  Country: US (occurrence: None)
  Receive Date: 20130823
  Receipt Date: 20130823
  Transmission Date: 20140515
  Serious: No
  Sender: FDA-Public Use
  Company Number: None

PATIENT
  Age: 22 Year
  Sex: Male
  Weight: 64.4 kg

DRUGS (7)
  1. CLOZAPINE [Suspect]
     Indication: BIPOLAR DISORDER
     Route: 048
  2. DOCUSATE [Concomitant]
  3. SENNA [Concomitant]
  4. ONDANSETRON IBUPROFEN MIRALAX [Concomitant]
  5. ZOLPIDEM [Concomitant]
  6. ACETAMINOPHEN [Concomitant]
  7. LAMOTRIGINE [Concomitant]

REACTIONS (4)
  - Tachycardia [None]
  - Troponin increased [None]
  - White blood cell count increased [None]
  - Myocarditis [None]
